FAERS Safety Report 9967199 (Version 1)
Quarter: 2014Q1

REPORT INFORMATION
  Report Type: Report from Study
  Country: PR (occurrence: PR)
  Receive Date: 20140305
  Receipt Date: 20140305
  Transmission Date: 20141002
  Serious: No
  Sender: FDA-Public Use
  Company Number: PR-ABBVIE-13P-131-1143748-00

PATIENT
  Sex: Female
  Weight: 71.28 kg

DRUGS (12)
  1. HUMIRA [Suspect]
     Indication: RHEUMATOID ARTHRITIS
     Route: 058
     Dates: start: 2011, end: 201308
  2. HUMULIN N [Concomitant]
     Indication: DIABETES MELLITUS
     Dosage: AT MORNING
     Route: 058
  3. HUMULIN N [Concomitant]
     Dosage: IN THE AFTERNOON
     Route: 058
  4. SYNTHROID [Concomitant]
     Indication: THYROID DISORDER
  5. ISLOTIN [Concomitant]
     Indication: DIABETES MELLITUS
     Route: 048
  6. CALAN [Concomitant]
     Indication: HYPERTENSION
     Route: 048
  7. SIMVASTATIN [Concomitant]
     Indication: BLOOD CHOLESTEROL
     Route: 048
  8. FENOFIBRATE [Concomitant]
     Indication: PROPHYLAXIS
     Route: 048
  9. VITAMIN B6 [Concomitant]
     Indication: VITAMIN SUPPLEMENTATION
     Route: 048
  10. FOLIC ACID [Concomitant]
     Indication: VITAMIN SUPPLEMENTATION
     Route: 048
  11. ZANTAC [Concomitant]
     Indication: GASTRITIS
     Route: 048
  12. OMEPRAZOL [Concomitant]
     Indication: GASTRITIS
     Route: 048

REACTIONS (1)
  - Drug ineffective [Recovered/Resolved]
